FAERS Safety Report 9285765 (Version 1)
Quarter: 2013Q2

REPORT INFORMATION
  Report Type: Spontaneous
  Country: US (occurrence: US)
  Receive Date: 20130513
  Receipt Date: 20130513
  Transmission Date: 20140414
  Serious: Yes (Other)
  Sender: FDA-Public Use
  Company Number: US-PFIZER INC-2013146810

PATIENT
  Age: 59 Year
  Sex: Female
  Weight: 136.6 kg

DRUGS (9)
  1. EFFEXOR XR [Suspect]
     Indication: MAJOR DEPRESSION
     Dosage: 150 MG, 1X/DAY
     Route: 048
  2. LYRICA [Suspect]
     Indication: FIBROMYALGIA
     Dosage: 150 MG, UNK
     Route: 048
  3. LISINOPRIL [Concomitant]
     Indication: HYPERTENSION
     Dosage: UNK, 1X/DAY
  4. PERCOCET [Concomitant]
     Dosage: 10/325 MG, AS NEEDED
  5. PRAVASTATIN [Concomitant]
     Indication: BLOOD CHOLESTEROL INCREASED
     Dosage: UNK
  6. VITAMIN D3 [Concomitant]
     Dosage: 8000 UNITS, 1X/DAY
  7. NUVIGIL [Concomitant]
     Dosage: 250 MG, 1X/DAY
  8. ZANAFLEX [Concomitant]
     Dosage: 4 MG, UNK
  9. CELEBREX [Concomitant]
     Dosage: UNK

REACTIONS (1)
  - Arthropathy [Unknown]
